FAERS Safety Report 5491900-2 (Version None)
Quarter: 2007Q4

REPORT INFORMATION
  Report Type: 
  Country: None (occurrence: None)
  Receive Date: 20071022
  Receipt Date: 20071011
  Transmission Date: 20080405
  Serious: Yes (Other)
  Sender: FDA-Public Use
  Company Number: NL-JNJFOC-20071003228

PATIENT
  Sex: Female
  Weight: 50 kg

DRUGS (1)
  1. TRISPORAL [Suspect]
     Indication: FUNGAL INFECTION
     Route: 065

REACTIONS (4)
  - DEPRESSED MOOD [None]
  - MUSCULAR WEAKNESS [None]
  - PALPITATIONS [None]
  - WEIGHT DECREASED [None]
